FAERS Safety Report 9675827 (Version 1)
Quarter: 2013Q4

REPORT INFORMATION
  Report Type: Spontaneous
  Country: US (occurrence: US)
  Receive Date: 20131107
  Receipt Date: 20131107
  Transmission Date: 20140711
  Serious: Yes (Other)
  Sender: FDA-Public Use
  Company Number: US-GLAXOSMITHKLINE-A1048246A

PATIENT
  Sex: Female

DRUGS (9)
  1. ADVAIR [Suspect]
     Indication: ASTHMA
     Dosage: 1PUFF TWICE PER DAY
     Route: 055
  2. FLOVENT [Suspect]
     Indication: ASTHMA
     Route: 055
     Dates: start: 201211, end: 201309
  3. SPIRIVA [Suspect]
     Indication: PRODUCT USED FOR UNKNOWN INDICATION
     Route: 055
  4. SYMBICORT [Suspect]
     Indication: PRODUCT USED FOR UNKNOWN INDICATION
     Route: 055
     Dates: end: 201305
  5. SINGULAIR [Concomitant]
  6. ALBUTEROL INHALER [Concomitant]
  7. PREDNISONE [Concomitant]
  8. XOLAIR [Concomitant]
  9. PREDNISONE [Concomitant]

REACTIONS (9)
  - Oesophageal candidiasis [Unknown]
  - Oral candidiasis [Unknown]
  - Pharyngeal disorder [Unknown]
  - Haemoptysis [Unknown]
  - Urticaria [Unknown]
  - Throat tightness [Unknown]
  - Headache [Unknown]
  - Dysphonia [Unknown]
  - Hypersensitivity [Unknown]
